FAERS Safety Report 6999225-0 (Version None)
Quarter: 2010Q3

REPORT INFORMATION
  Report Type: 
  Country: None (occurrence: None)
  Receive Date: 20100920
  Receipt Date: 20100702
  Transmission Date: 20110219
  Serious: No
  Sender: FDA-Public Use
  Company Number: US-ASTRAZENECA-2010SE31072

PATIENT
  Age: 52 Year
  Sex: Female

DRUGS (6)
  1. SEROQUEL XR [Suspect]
     Indication: BIPOLAR DISORDER
     Route: 048
     Dates: start: 20090101
  2. SEROQUEL XR [Suspect]
     Route: 048
  3. SEROQUEL XR [Suspect]
     Route: 048
  4. SEROQUEL XR [Suspect]
     Route: 048
  5. SEROQUEL XR [Suspect]
     Route: 048
     Dates: start: 20100601
  6. LAMICTAL [Concomitant]

REACTIONS (7)
  - CONSTIPATION [None]
  - DIZZINESS [None]
  - FLATULENCE [None]
  - HYPERHIDROSIS [None]
  - IRRITABILITY [None]
  - IRRITABLE BOWEL SYNDROME [None]
  - MUSCLE DISORDER [None]
